FAERS Safety Report 8341662-6 (Version None)
Quarter: 2012Q2

REPORT INFORMATION
  Report Type: 
  Country: None (occurrence: None)
  Receive Date: 20120507
  Receipt Date: 20120503
  Transmission Date: 20120825
  Serious: Yes (Death, Life-Threatening, Hospitalization, Other)
  Sender: FDA-Public Use
  Company Number: GB-JNJFOC-20120309778

PATIENT
  Age: 17 Year
  Sex: Male
  Weight: 83 kg

DRUGS (3)
  1. ACETAMINOPHEN [Suspect]
     Indication: PAIN
     Route: 048
     Dates: start: 20120304
  2. ACETAMINOPHEN [Suspect]
     Route: 048
  3. IBUPROFEN TABLETS [Suspect]
     Indication: OROPHARYNGEAL PAIN
     Route: 048

REACTIONS (4)
  - STEVENS-JOHNSON SYNDROME [None]
  - WHITE BLOOD CELL COUNT DECREASED [None]
  - PLATELET COUNT DECREASED [None]
  - NEUTROPHIL COUNT DECREASED [None]
